FAERS Safety Report 17512446 (Version 2)
Quarter: 2025Q3

REPORT INFORMATION
  Report Type: Spontaneous
  Country: IN (occurrence: IN)
  Receive Date: 20200306
  Receipt Date: 20250815
  Transmission Date: 20251020
  Serious: Yes (Death, Other)
  Sender: MERCK SHARP & DOHME LLC
  Company Number: IN-009507513-2003IND001404

PATIENT
  Age: 18 Year
  Sex: Male

DRUGS (1)
  1. CASPOFUNGIN ACETATE [Suspect]
     Active Substance: CASPOFUNGIN ACETATE
     Indication: Candida infection
     Dosage: DOSE DESCRIPTION : 50 MILLIGRAM, ONCE DAILY?DAILY DOSE : 50 MILLIGRAM

REACTIONS (2)
  - Septic shock [Fatal]
  - Drug ineffective [Unknown]
